FAERS Safety Report 25233056 (Version 2)
Quarter: 2025Q3

REPORT INFORMATION
  Report Type: Report from Study
  Country: JP (occurrence: JP)
  Receive Date: 20250424
  Receipt Date: 20250723
  Transmission Date: 20251021
  Serious: Yes (Death, Life-Threatening, Hospitalization, Disabling, Other)
  Sender: GLAXOSMITHKLINE
  Company Number: JP-GSKJP-JP2025JPN047993AA

PATIENT
  Age: 63 Year
  Sex: Female
  Weight: 64.1 kg

DRUGS (3)
  1. BELIMUMAB [Suspect]
     Active Substance: BELIMUMAB
     Indication: Systemic lupus erythematosus
     Dosage: 580 MG, QD
     Dates: start: 20180518
  2. TACROLIMUS [Suspect]
     Active Substance: TACROLIMUS
     Indication: Systemic lupus erythematosus
     Dosage: 1 MG, QD
     Dates: start: 20210122
  3. MYCOPHENOLIC ACID [Suspect]
     Active Substance: MYCOPHENOLIC ACID
     Indication: Systemic lupus erythematosus
     Dosage: 1500 MG, QD
     Dates: start: 20161118

REACTIONS (8)
  - Hypoxia [Fatal]
  - Respiratory failure [Fatal]
  - Pyrexia [Recovering/Resolving]
  - Seizure [Recovered/Resolved with Sequelae]
  - Neuropsychiatric lupus [Unknown]
  - Asphyxia [Fatal]
  - Prescribed underdose [Unknown]
  - Off label use [Unknown]

NARRATIVE: CASE EVENT DATE: 20210814
